FAERS Safety Report 11444361 (Version 3)
Quarter: 2015Q4

REPORT INFORMATION
  Report Type: Report from Study
  Country: US (occurrence: US)
  Receive Date: 20150902
  Receipt Date: 20151014
  Transmission Date: 20160304
  Serious: Yes (Other)
  Sender: FDA-Public Use
  Company Number: US-AMGEN-USASP2015088407

PATIENT
  Age: 54 Year
  Sex: Female

DRUGS (2)
  1. ENBREL [Suspect]
     Active Substance: ETANERCEPT
     Indication: RHEUMATOID ARTHRITIS
     Dosage: UNK
     Route: 065
  2. PREDNISONE. [Concomitant]
     Active Substance: PREDNISONE
     Dosage: UNK
     Dates: start: 20150821

REACTIONS (9)
  - Injection site swelling [Unknown]
  - Hypersensitivity [Unknown]
  - Injection site discolouration [Unknown]
  - Injection site pain [Unknown]
  - Nasopharyngitis [Unknown]
  - Pain in extremity [Unknown]
  - Asthma [Unknown]
  - Bronchoplasty [Unknown]
  - Injection site haemorrhage [Unknown]

NARRATIVE: CASE EVENT DATE: 201211
